FAERS Safety Report 9477803 (Version 2)
Quarter: 2013Q3

REPORT INFORMATION
  Report Type: Report from Study
  Country: US (occurrence: US)
  Receive Date: 20130827
  Receipt Date: 20130905
  Transmission Date: 20140515
  Serious: Yes (Other)
  Sender: FDA-Public Use
  Company Number: US-BRISTOL-MYERS SQUIBB COMPANY-19195452

PATIENT
  Age: 51 Year
  Sex: Female
  Weight: 55.2 kg

DRUGS (9)
  1. LIRILUMAB [Suspect]
     Indication: NON-SMALL CELL LUNG CANCER
     Dosage: TOTAL DOSE:17MG?12ML
     Route: 042
     Dates: start: 20130730
  2. IPILIMUMAB [Suspect]
     Indication: NON-SMALL CELL LUNG CANCER
     Dosage: TOATAL DOSE:168MG?142ML
     Route: 042
     Dates: start: 20130730
  3. TYLENOL [Concomitant]
  4. PERCOCET [Concomitant]
  5. LEXAPRO [Concomitant]
  6. LORAZEPAM [Concomitant]
  7. FAMOTIDINE [Concomitant]
     Dates: start: 20130730, end: 20130730
  8. BENADRYL [Concomitant]
     Dates: start: 20130730, end: 20130819
  9. LIDEX [Concomitant]
     Dates: start: 20130801

REACTIONS (3)
  - Dysphagia [Not Recovered/Not Resolved]
  - Dry mouth [Not Recovered/Not Resolved]
  - Pain [Recovered/Resolved]
